FAERS Safety Report 8124317-2 (Version None)
Quarter: 2012Q1

REPORT INFORMATION
  Report Type: 
  Country: None (occurrence: None)
  Receive Date: 20120209
  Receipt Date: 20120201
  Transmission Date: 20120608
  Serious: Yes (Hospitalization)
  Sender: FDA-Public Use
  Company Number: US-BAYER-2011-063041

PATIENT
  Age: 26 Year
  Sex: Female
  Weight: 56.689 kg

DRUGS (4)
  1. YAZ [Suspect]
     Indication: CONTRACEPTION
     Dosage: UNK
     Dates: start: 20070101, end: 20090301
  2. ERYTHROMYCIN [Concomitant]
     Dosage: 2 %, UNK
     Route: 061
     Dates: start: 20080818, end: 20090514
  3. YASMIN [Suspect]
     Indication: CONTRACEPTION
     Dosage: UNK
     Dates: start: 20090101
  4. OFLOXACIN [Concomitant]
     Dosage: 0.3 %, UNK
     Route: 061
     Dates: start: 20090126

REACTIONS (6)
  - ABDOMINAL PAIN UPPER [None]
  - ABDOMINAL DISCOMFORT [None]
  - GALLBLADDER DISORDER [None]
  - QUALITY OF LIFE DECREASED [None]
  - CHOLECYSTITIS CHRONIC [None]
  - DYSPEPSIA [None]
